FAERS Safety Report 9381888 (Version 3)
Quarter: 2013Q3

REPORT INFORMATION
  Report Type: Report from Study
  Country: JP (occurrence: JP)
  Receive Date: 20130703
  Receipt Date: 20130724
  Transmission Date: 20140515
  Serious: Yes (Death)
  Sender: FDA-Public Use
  Company Number: JP-ABBOTT-13P-087-1056396-00

PATIENT
  Age: 89 Year
  Sex: Male
  Weight: 46 kg

DRUGS (3)
  1. HUMIRA [Suspect]
     Indication: PSORIASIS
     Route: 058
     Dates: start: 20100826, end: 20100826
  2. HUMIRA [Suspect]
     Dates: start: 20101209, end: 20110113
  3. HUMIRA [Suspect]
     Dates: start: 20110210, end: 20120712

REACTIONS (2)
  - Hepatocellular carcinoma [Fatal]
  - Hepatic cirrhosis [Fatal]
